FAERS Safety Report 22137141 (Version 1)
Quarter: 2023Q1

REPORT INFORMATION
  Report Type: Spontaneous
  Country: GB (occurrence: GB)
  Receive Date: 20230324
  Receipt Date: 20230324
  Transmission Date: 20230418
  Serious: Yes (Death)
  Sender: FDA-Public Use
  Company Number: GB-MALLINCKRODT-MNK202300528

PATIENT
  Age: 3 Year
  Sex: Female
  Weight: 14 kg

DRUGS (3)
  1. UVADEX [Suspect]
     Active Substance: METHOXSALEN
     Indication: Acute graft versus host disease in skin
     Dosage: NO. OF ECP TREATMENTS: 50
     Route: 050
     Dates: start: 20220712, end: 20230202
  2. UVADEX [Suspect]
     Active Substance: METHOXSALEN
     Indication: Graft versus host disease in lung
  3. ANTICOAGULANT CITRATE DEXTROSE SOLUTION (ACD) NOS [Concomitant]
     Active Substance: CITRIC ACID MONOHYDRATE\DEXTROSE\SODIUM CITRATE
     Dosage: UNKNOWN, 14:1

REACTIONS (5)
  - Obliterative bronchiolitis [Fatal]
  - Acute graft versus host disease [Fatal]
  - Condition aggravated [Fatal]
  - Transplantation complication [Fatal]
  - Product use in unapproved indication [Unknown]
